FAERS Safety Report 7918005-2 (Version None)
Quarter: 2011Q4

REPORT INFORMATION
  Report Type: 
  Country: None (occurrence: None)
  Receive Date: 20111116
  Receipt Date: 20111107
  Transmission Date: 20120403
  Serious: Yes (Hospitalization, Other)
  Sender: FDA-Public Use
  Company Number: GR-JNJFOC-20111102303

PATIENT
  Sex: Male
  Weight: 97 kg

DRUGS (11)
  1. DOXORUBICIN HYDROCHLORIDE [Suspect]
     Indication: MULTIPLE MYELOMA
     Route: 042
     Dates: start: 20110506, end: 20110520
  2. VELCADE [Suspect]
     Route: 042
     Dates: start: 20110726
  3. DEXAMETHASONE [Suspect]
     Route: 048
     Dates: start: 20110506
  4. DOXORUBICIN HYDROCHLORIDE [Suspect]
     Route: 042
     Dates: start: 20110726
  5. VELCADE [Suspect]
     Route: 042
     Dates: start: 20110101
  6. VELCADE [Suspect]
     Route: 042
     Dates: start: 20110612
  7. DEXAMETHASONE [Suspect]
     Indication: MULTIPLE MYELOMA
     Route: 048
     Dates: start: 20110804
  8. VELCADE [Suspect]
     Indication: MULTIPLE MYELOMA
     Route: 042
     Dates: start: 20110506, end: 20110520
  9. VELCADE [Suspect]
     Route: 042
     Dates: start: 20110101
  10. DOXORUBICIN HYDROCHLORIDE [Suspect]
     Route: 042
     Dates: start: 20110612
  11. VELCADE [Suspect]
     Route: 042
     Dates: start: 20110101

REACTIONS (4)
  - LOWER RESPIRATORY TRACT INFECTION [None]
  - UPPER RESPIRATORY TRACT INFECTION [None]
  - BLOOD CREATININE INCREASED [None]
  - URINE OUTPUT DECREASED [None]
